FAERS Safety Report 8524958-4 (Version None)
Quarter: 2012Q3

REPORT INFORMATION
  Report Type: 
  Country: None (occurrence: None)
  Receive Date: 20120710
  Receipt Date: 20120625
  Transmission Date: 20120928
  Serious: Yes (Hospitalization)
  Sender: FDA-Public Use
  Company Number: TW-007916

PATIENT
  Age: 80 Year
  Sex: Male
  Weight: 91 kg

DRUGS (4)
  1. DEGARELIX (DEGARELIX) (240 MG, 80 MG) [Suspect]
     Indication: PROSTATE CANCER
     Dosage: 240 MG TOTAL SUBCUTANEOUS, 80 MG 1X/MONTH
     Route: 058
     Dates: start: 20111209, end: 20111209
  2. DEGARELIX (DEGARELIX) (240 MG, 80 MG) [Suspect]
     Indication: PROSTATE CANCER
     Dosage: 240 MG TOTAL SUBCUTANEOUS, 80 MG 1X/MONTH
     Route: 058
     Dates: start: 20111212
  3. ALFUZOSIN [Concomitant]
  4. TAMSULOSIN HCL [Concomitant]

REACTIONS (12)
  - PULMONARY VALVE INCOMPETENCE [None]
  - TRICUSPID VALVE INCOMPETENCE [None]
  - DIASTOLIC DYSFUNCTION [None]
  - OEDEMA PERIPHERAL [None]
  - VENTRICULAR HYPERTROPHY [None]
  - AORTIC VALVE INCOMPETENCE [None]
  - MITRAL VALVE INCOMPETENCE [None]
  - HYPERTENSION [None]
  - LUNG NEOPLASM [None]
  - HEADACHE [None]
  - LEFT ATRIAL DILATATION [None]
  - AORTIC STENOSIS [None]
